FAERS Safety Report 8420332-X (Version None)
Quarter: 2012Q2

REPORT INFORMATION
  Report Type: 
  Country: None (occurrence: None)
  Receive Date: 20120607
  Receipt Date: 20120530
  Transmission Date: 20120825
  Serious: Yes (Hospitalization)
  Sender: FDA-Public Use
  Company Number: US-US-EMD SERONO, INC.-7137438

PATIENT
  Sex: Female
  Weight: 109 kg

DRUGS (5)
  1. BACLOFEN [Concomitant]
     Indication: PRODUCT USED FOR UNKNOWN INDICATION
  2. ZOLOFT [Concomitant]
     Indication: PRODUCT USED FOR UNKNOWN INDICATION
  3. REBIF [Suspect]
     Route: 058
     Dates: start: 20120518
  4. WARFARIN SODIUM [Concomitant]
     Indication: PRODUCT USED FOR UNKNOWN INDICATION
  5. REBIF [Suspect]
     Indication: RELAPSING-REMITTING MULTIPLE SCLEROSIS
     Route: 058
     Dates: end: 20120113

REACTIONS (2)
  - THROMBOSIS [None]
  - INJECTION SITE ERYTHEMA [None]
